FAERS Safety Report 10757792 (Version 1)
Quarter: 2015Q1

REPORT INFORMATION
  Report Type: Spontaneous
  Country: US (occurrence: US)
  Receive Date: 20150203
  Receipt Date: 20150203
  Transmission Date: 20150721
  Serious: Yes (Death, Other)
  Sender: FDA-Public Use
  Company Number: US-CUBIST PHARMACEUTICALS, INC.-2015CBST000134

PATIENT

DRUGS (2)
  1. CUBICIN [Suspect]
     Active Substance: DAPTOMYCIN
     Indication: STAPHYLOCOCCAL INFECTION
     Dosage: MEDIAN DOSE WAS 9.9 MG/KG (IQR 8.8 TO 10.0 MG/KG), ONCE DAILY
     Route: 042
  2. SULFAMETHOXAZOLE AND TRIMETHOPRIM [Suspect]
     Active Substance: SULFAMETHOXAZOLE\TRIMETHOPRIM
     Indication: STAPHYLOCOCCAL INFECTION
     Dosage: 240 MG, Q12H
     Route: 042

REACTIONS (4)
  - Hyperkalaemia [Recovered/Resolved]
  - Antimicrobial susceptibility test resistant [Unknown]
  - Septic embolus [Fatal]
  - Pulmonary embolism [Fatal]
